FAERS Safety Report 4825552-9 (Version None)
Quarter: 2005Q4

REPORT INFORMATION
  Report Type: 
  Country: None (occurrence: None)
  Receive Date: 20051111
  Receipt Date: 20050901
  Transmission Date: 20060501
  Serious: No
  Sender: FDA-Public Use
  Company Number: US-GLAXOSMITHKLINE-A0572740A

PATIENT
  Age: 81 Year
  Sex: Male

DRUGS (3)
  1. AVODART [Suspect]
     Indication: BENIGN PROSTATIC HYPERPLASIA
     Dosage: .5MG PER DAY
     Route: 048
  2. LOVASTATIN [Concomitant]
     Route: 065
  3. GLUCOSAMINE [Concomitant]
     Route: 065

REACTIONS (2)
  - BREAST PAIN [None]
  - BREAST SWELLING [None]
